FAERS Safety Report 11263946 (Version 1)
Quarter: 2015Q3

REPORT INFORMATION
  Report Type: Spontaneous
  Country: US (occurrence: US)
  Receive Date: 20150713
  Receipt Date: 20150713
  Transmission Date: 20151125
  Serious: Yes (Other)
  Sender: FDA-Public Use
  Company Number: US-JNJFOC-20150601678

PATIENT
  Sex: Male

DRUGS (2)
  1. LYRICA [Suspect]
     Active Substance: PREGABALIN
     Indication: ANTIDEPRESSANT THERAPY
     Route: 065
  2. HALDOL [Suspect]
     Active Substance: HALOPERIDOL
     Indication: PRODUCT USED FOR UNKNOWN INDICATION
     Route: 065

REACTIONS (7)
  - Tardive dyskinesia [Unknown]
  - Hypertension [Unknown]
  - Bruxism [Unknown]
  - Movement disorder [Unknown]
  - Muscle tightness [Unknown]
  - Dyskinesia [Unknown]
  - Insomnia [Unknown]
